FAERS Safety Report 4586620-2 (Version None)
Quarter: 2005Q1

REPORT INFORMATION
  Report Type: 
  Country: None (occurrence: None)
  Receive Date: 20050218
  Receipt Date: 20040721
  Transmission Date: 20050727
  Serious: No
  Sender: FDA-Public Use
  Company Number: US-BRISTOL-MYERS SQUIBB COMPANY-12647343

PATIENT
  Age: 54 Year
  Sex: Male
  Weight: 65 kg

DRUGS (9)
  1. TAXOL [Suspect]
     Indication: LUNG NEOPLASM MALIGNANT
     Dosage: 50 MG/M^2
     Route: 042
     Dates: start: 20040714, end: 20040714
  2. RADIATION THERAPY [Concomitant]
  3. CIMETIDINE [Concomitant]
     Indication: PREMEDICATION
     Route: 042
     Dates: start: 20040714, end: 20040714
  4. BENADRYL [Concomitant]
     Indication: PREMEDICATION
     Route: 042
     Dates: start: 20040714, end: 20040714
  5. ZOFRAN [Concomitant]
     Indication: PREMEDICATION
     Route: 042
     Dates: start: 20040714, end: 20040714
  6. DEXAMETHASONE [Concomitant]
     Indication: PREMEDICATION
     Route: 042
     Dates: start: 20040714, end: 20040714
  7. COLACE [Concomitant]
     Dosage: DURATION FOR SEVERAL MONTHS
  8. MORPHINE [Concomitant]
     Dosage: LONG-ACTING STRENGTH AND DURATION REPORTED AS FOR SEVERAL MONTHS
  9. LOVENOX [Concomitant]
     Dosage: DURATION REPORTED AS ^FOR SEVERAL MONTHS^

REACTIONS (1)
  - HYPERSENSITIVITY [None]
